FAERS Safety Report 15593670 (Version 2)
Quarter: 2018Q4

REPORT INFORMATION
  Report Type: Spontaneous
  Country: ZA (occurrence: ZA)
  Receive Date: 20181107
  Receipt Date: 20181119
  Transmission Date: 20190205
  Serious: Yes (Other)
  Sender: FDA-Public Use
  Company Number: ZA-PFIZER INC-2018448935

PATIENT
  Sex: Female

DRUGS (1)
  1. SALAZOPYRIN EN [Suspect]
     Active Substance: SULFASALAZINE
     Dosage: UNK

REACTIONS (3)
  - Cardiomyopathy [Unknown]
  - C-reactive protein decreased [Unknown]
  - Cardiac failure [Unknown]
